FAERS Safety Report 24612532 (Version 3)
Quarter: 2024Q4

REPORT INFORMATION
  Report Type: Spontaneous
  Country: JP (occurrence: JP)
  Receive Date: 20241113
  Receipt Date: 20241225
  Transmission Date: 20250115
  Serious: Yes (Death, Other)
  Sender: ROCHE
  Company Number: JP-CHUGAI-2024039144AA

PATIENT
  Age: 76 Year
  Sex: Female
  Weight: 35.9 kg

DRUGS (6)
  1. POLIVY [Suspect]
     Active Substance: POLATUZUMAB VEDOTIN-PIIQ
     Indication: Diffuse large B-cell lymphoma
     Dosage: MOST RECENT DOSE: 27-SEP-2024
     Route: 042
     Dates: start: 20240905, end: 20240927
  2. RITUXIMAB [Suspect]
     Active Substance: RITUXIMAB
     Indication: Diffuse large B-cell lymphoma
     Dosage: MOST RECENT DOSE: 27-SEP-2024
     Route: 042
     Dates: start: 20240905, end: 20240927
  3. CYCLOPHOSPHAMIDE [Suspect]
     Active Substance: CYCLOPHOSPHAMIDE
     Indication: Diffuse large B-cell lymphoma
     Dosage: MOST RECENT DOSE: 27-SEP-2024
     Route: 042
     Dates: start: 20240905, end: 20240927
  4. DOXORUBICIN HYDROCHLORIDE [Suspect]
     Active Substance: DOXORUBICIN HYDROCHLORIDE
     Indication: Diffuse large B-cell lymphoma
     Dosage: MOST RECENT DOSE: 27-SEP-2024
     Route: 042
     Dates: start: 20240905, end: 20240927
  5. PREDNISOLONE [Suspect]
     Active Substance: PREDNISOLONE
     Indication: Diffuse large B-cell lymphoma
     Dosage: MOST RECENT DOSE: 27-SEP-2024
     Route: 048
     Dates: start: 20240905, end: 20240927
  6. METHOTREXATE [Concomitant]
     Active Substance: METHOTREXATE
     Route: 065
     Dates: start: 20240919, end: 20240919

REACTIONS (4)
  - Febrile neutropenia [Not Recovered/Not Resolved]
  - Nausea [Recovering/Resolving]
  - Interstitial lung disease [Fatal]
  - Pneumonia bacterial [Not Recovered/Not Resolved]

NARRATIVE: CASE EVENT DATE: 20240906
